FAERS Safety Report 6383121-6 (Version None)
Quarter: 2009Q3

REPORT INFORMATION
  Report Type: 
  Country: None (occurrence: None)
  Receive Date: 20090930
  Receipt Date: 20090922
  Transmission Date: 20100115
  Serious: Yes (Hospitalization, Other)
  Sender: FDA-Public Use
  Company Number: FR-MERCK-0909FRA00065

PATIENT
  Age: 18 Year
  Sex: Female

DRUGS (8)
  1. NOROXIN [Suspect]
     Indication: ABDOMINAL PAIN
     Route: 048
     Dates: start: 20090501, end: 20090501
  2. NOROXIN [Suspect]
     Route: 048
     Dates: start: 20090101, end: 20090101
  3. NOROXIN [Suspect]
     Indication: URINARY TRACT INFECTION
     Route: 048
     Dates: start: 20090501, end: 20090501
  4. NOROXIN [Suspect]
     Route: 048
     Dates: start: 20090101, end: 20090101
  5. CEFIXIME [Suspect]
     Indication: ABDOMINAL PAIN
     Route: 048
     Dates: start: 20090501, end: 20090501
  6. CEFIXIME [Suspect]
     Indication: URINARY TRACT INFECTION
     Route: 048
     Dates: start: 20090501, end: 20090501
  7. IBUPROFEN [Suspect]
     Indication: ABDOMINAL PAIN
     Route: 048
     Dates: start: 20090501, end: 20090501
  8. IBUPROFEN [Suspect]
     Indication: URINARY TRACT INFECTION
     Route: 048
     Dates: start: 20090501, end: 20090501

REACTIONS (3)
  - ANGIOEDEMA [None]
  - EYELID OEDEMA [None]
  - URTICARIA [None]
